FAERS Safety Report 5323798-7 (Version None)
Quarter: 2007Q2

REPORT INFORMATION
  Report Type: 
  Country: None (occurrence: None)
  Receive Date: 20070509
  Receipt Date: 20070509
  Transmission Date: 20071010
  Serious: Yes (Hospitalization)
  Sender: FDA-Public Use
  Company Number: None

PATIENT
  Sex: Male
  Weight: 90 kg

DRUGS (11)
  1. CYCLOPHOSPHAMIDE [Suspect]
     Dosage: 2100 MG
  2. CYTARABINE [Suspect]
     Dosage: 2140 MG
  3. DEXAMETHASONE 0.5MG TAB [Suspect]
     Dosage: 100 MG
  4. ETOPOSIDE [Suspect]
     Dosage: 340 MG
  5. IFOSFAMIDE [Suspect]
     Dosage: 8500 MG
  6. LEUCOVORIN CALCIUM [Suspect]
     Dosage: 55 MG
  7. MESNA [Suspect]
     Dosage: 6000 MG
  8. METHOTREXATE [Suspect]
     Dosage: 3210 MG
  9. PREDNISONE TAB [Suspect]
     Dosage: 910 MG
  10. RITUXIMAB (MOAB C2B8 ANTI CD20, CHIMERIC) [Suspect]
     Dosage: 1600 MG
  11. VINCRISTINE SULFATE [Suspect]
     Dosage: 2 MG

REACTIONS (10)
  - ANORECTAL CELLULITIS [None]
  - CANDIDIASIS [None]
  - CORYNEBACTERIUM INFECTION [None]
  - CULTURE POSITIVE [None]
  - ENTEROCOCCAL INFECTION [None]
  - HYDROCELE [None]
  - MYOSITIS [None]
  - OEDEMA [None]
  - SCROTAL OEDEMA [None]
  - STAPHYLOCOCCAL INFECTION [None]
